FAERS Safety Report 6503179-0 (Version None)
Quarter: 2009Q4

REPORT INFORMATION
  Report Type: 
  Country: None (occurrence: None)
  Receive Date: 20091217
  Receipt Date: 20091210
  Transmission Date: 20100525
  Serious: Yes (Other)
  Sender: FDA-Public Use
  Company Number: US-JNJFOC-20091203880

PATIENT
  Age: 24 Year
  Sex: Male
  Weight: 65.77 kg

DRUGS (1)
  1. MYLANTA SUPREME TASTING CHERRY [Suspect]
     Indication: ABDOMINAL DISCOMFORT
     Dosage: 30-60 ML TWICE IN ONE DAY
     Route: 048

REACTIONS (4)
  - DEHYDRATION [None]
  - EXPIRED DRUG ADMINISTERED [None]
  - INCORRECT DOSE ADMINISTERED [None]
  - VOMITING [None]
